FAERS Safety Report 10378651 (Version 1)
Quarter: 2014Q3

REPORT INFORMATION
  Report Type: Spontaneous
  Country: US (occurrence: None)
  Receive Date: 20140811
  Receipt Date: 20140811
  Transmission Date: 20150326
  Serious: Yes (Other)
  Sender: FDA-Public Use
  Company Number: None

PATIENT
  Age: 72 Year
  Sex: Male
  Weight: 83.92 kg

DRUGS (18)
  1. TAMSULOSIN HCL [Concomitant]
     Active Substance: TAMSULOSIN
  2. HYDROCODON-ACETAMINOPH [Concomitant]
  3. COENZYME Q10 [Concomitant]
     Active Substance: UBIDECARENONE
  4. TRIAMT/HCTZ [Concomitant]
     Active Substance: HYDROCHLOROTHIAZIDE\TRIAMTERENE
  5. RED YEAST RICE [Concomitant]
     Active Substance: DIETARY SUPPLEMENT
  6. MAGNESIUM [Concomitant]
     Active Substance: MAGNESIUM
  7. ANAGRELIDE CAPSULES [Concomitant]
  8. VITAMIN B12 [Concomitant]
     Active Substance: CYANOCOBALAMIN
  9. BABY ASPIRIN [Concomitant]
     Active Substance: ASPIRIN
  10. CALCIUM [Concomitant]
     Active Substance: CALCIUM
  11. VITAMIN C [Concomitant]
     Active Substance: ASCORBIC ACID
  12. OMEGA-3 FISH OIL [Concomitant]
     Active Substance: FISH OIL\OMEGA-3 FATTY ACIDS
  13. ACIDOPHILUS COMPLEX [Concomitant]
  14. NAPROXEN. [Concomitant]
     Active Substance: NAPROXEN
  15. NEURONTIN [Concomitant]
     Active Substance: GABAPENTIN
  16. VITAMIN D3 [Concomitant]
     Active Substance: CHOLECALCIFEROL
  17. HYDROXYUREA. [Suspect]
     Active Substance: HYDROXYUREA
     Indication: THROMBOCYTOSIS
     Dosage: 1 CAPSULE TWICE A DAY MOUTH
     Route: 048
     Dates: start: 201303, end: 20140408
  18. CHELATED ZINC [Concomitant]

REACTIONS (4)
  - Arthralgia [None]
  - Contusion [None]
  - Joint injury [None]
  - Ulcer [None]

NARRATIVE: CASE EVENT DATE: 20140105
